FAERS Safety Report 8369863-1 (Version None)
Quarter: 2012Q2

REPORT INFORMATION
  Report Type: 
  Country: None (occurrence: None)
  Receive Date: 20120518
  Receipt Date: 20120515
  Transmission Date: 20120825
  Serious: Yes (Other)
  Sender: FDA-Public Use
  Company Number: HU-PFIZER INC-2012119588

PATIENT
  Age: 58 Year
  Sex: Male
  Weight: 90 kg

DRUGS (9)
  1. GLIMEPIRIDE [Concomitant]
     Dosage: UNK
  2. NEBIVOLOL HCL [Concomitant]
     Dosage: UNK
  3. XETER [Concomitant]
     Dosage: UNK
  4. TROMBEX [Concomitant]
     Dosage: UNK
     Dates: start: 20090101
  5. RAMIPRIL [Concomitant]
     Dosage: UNK
  6. CAVINTON [Concomitant]
     Dosage: UNK
  7. DICLAC [Concomitant]
     Dosage: UNK
  8. METFORMIN [Concomitant]
     Dosage: UNK
  9. LYRICA [Suspect]
     Indication: NEURALGIA
     Dosage: 75 MG, 2X/DAY
     Dates: start: 20120301, end: 20120401

REACTIONS (1)
  - HEPATIC PAIN [None]
